FAERS Safety Report 9194246 (Version 2)
Quarter: 2013Q2

REPORT INFORMATION
  Report Type: Spontaneous
  Country: JP (occurrence: JP)
  Receive Date: 20130327
  Receipt Date: 20130410
  Transmission Date: 20140414
  Serious: Yes (Hospitalization)
  Sender: FDA-Public Use
  Company Number: PHHY2013JP025534

PATIENT
  Age: 79 Year
  Sex: Male

DRUGS (3)
  1. CICLOSPORIN [Suspect]
     Indication: INTERSTITIAL LUNG DISEASE
     Route: 048
  2. SULFAMETHOXAZOLE+TRIMETHOPRIM [Suspect]
     Indication: INTERSTITIAL LUNG DISEASE
     Route: 048
  3. PREDONINE [Suspect]
     Indication: INTERSTITIAL LUNG DISEASE
     Route: 048

REACTIONS (3)
  - Infective spondylitis [Recovering/Resolving]
  - Infective aneurysm [Recovering/Resolving]
  - Candida infection [Recovering/Resolving]
